FAERS Safety Report 12427046 (Version 1)
Quarter: 2016Q2

REPORT INFORMATION
  Report Type: Report from Study
  Country: US (occurrence: US)
  Receive Date: 20160601
  Receipt Date: 20160601
  Transmission Date: 20160815
  Serious: Yes (Hospitalization)
  Sender: FDA-Public Use
  Company Number: US-BIOGEN-2014BI053410

PATIENT
  Age: 53 Year
  Sex: Male

DRUGS (2)
  1. TYSABRI [Suspect]
     Active Substance: NATALIZUMAB
     Dosage: INFUSED OVER 1 HOUR
     Route: 042
     Dates: start: 20060927, end: 20150902
  2. TYSABRI [Suspect]
     Active Substance: NATALIZUMAB
     Indication: SECONDARY PROGRESSIVE MULTIPLE SCLEROSIS
     Route: 042

REACTIONS (22)
  - Decubitus ulcer [Recovered/Resolved]
  - Memory impairment [Not Recovered/Not Resolved]
  - Anger [Recovered/Resolved]
  - Fall [Recovered/Resolved]
  - Urosepsis [Recovered/Resolved]
  - Coordination abnormal [Not Recovered/Not Resolved]
  - Musculoskeletal disorder [Unknown]
  - Skin necrosis [Recovered/Resolved]
  - Depressed mood [Recovered/Resolved]
  - Nephrolithiasis [Recovered/Resolved]
  - Loss of control of legs [Unknown]
  - Balance disorder [Not Recovered/Not Resolved]
  - Intentional product use issue [Unknown]
  - Diplopia [Not Recovered/Not Resolved]
  - Cystitis [Recovered/Resolved]
  - Kidney infection [Recovered/Resolved]
  - Asthenia [Recovered/Resolved]
  - Renal injury [Recovered/Resolved]
  - Mobility decreased [Not Recovered/Not Resolved]
  - Central nervous system lesion [Not Recovered/Not Resolved]
  - Secondary progressive multiple sclerosis [Recovered/Resolved]
  - Fatigue [Not Recovered/Not Resolved]

NARRATIVE: CASE EVENT DATE: 2006
